FAERS Safety Report 18002277 (Version 2)
Quarter: 2020Q3

REPORT INFORMATION
  Report Type: Spontaneous
  Country: US (occurrence: US)
  Receive Date: 20200709
  Receipt Date: 20200714
  Transmission Date: 20201103
  Serious: No
  Sender: FDA-Public Use
  Company Number: US-JNJFOC-20200709851

PATIENT
  Sex: Female
  Weight: 84.44 kg

DRUGS (3)
  1. METHOTREXATE. [Concomitant]
     Active Substance: METHOTREXATE
     Indication: COLITIS ULCERATIVE
     Route: 048
  2. APRESOLIN [Concomitant]
     Active Substance: HYDRALAZINE HYDROCHLORIDE
     Indication: COLITIS ULCERATIVE
     Dosage: 4 NOS
     Route: 048
  3. REMICADE [Suspect]
     Active Substance: INFLIXIMAB
     Indication: COLITIS ULCERATIVE
     Route: 042
     Dates: start: 20200512

REACTIONS (1)
  - Drug ineffective [Unknown]
